FAERS Safety Report 20029180 (Version 3)
Quarter: 2022Q3

REPORT INFORMATION
  Report Type: Spontaneous
  Country: ES (occurrence: ES)
  Receive Date: 20211103
  Receipt Date: 20220915
  Transmission Date: 20221027
  Serious: Yes (Death, Hospitalization, Other)
  Sender: FDA-Public Use
  Company Number: None

PATIENT
  Age: 51 Year
  Sex: Female
  Weight: 55 kg

DRUGS (7)
  1. RITUXIMAB [Suspect]
     Active Substance: RITUXIMAB
     Indication: Antiphospholipid syndrome
     Dosage: 200 MG/M2, QD (200 MG/M2, UNK )
     Route: 042
     Dates: start: 20210916, end: 20210916
  2. MYFORTIC [Suspect]
     Active Substance: MYCOPHENOLATE SODIUM
     Indication: Liver transplant
     Dosage: 720 MG, Q12H (720MG/12H), 50 COMPRIMIDOS
     Route: 048
     Dates: start: 20160101, end: 20210909
  3. MYFORTIC [Suspect]
     Active Substance: MYCOPHENOLATE SODIUM
     Indication: Immunosuppression
  4. PREDNISONE [Suspect]
     Active Substance: PREDNISONE
     Indication: Prophylaxis against graft versus host disease
     Dosage: 30 G, QD (24 HOUR)
     Route: 048
     Dates: start: 20210903, end: 20210909
  5. SOLIRIS [Suspect]
     Active Substance: ECULIZUMAB
     Indication: Atypical haemolytic uraemic syndrome
     Dosage: 900 MG, QD (900 MG EL 22/09/2021 Y LUEGO OTRA DE 900 MG EL 29/09/2021), 1 VIAL DE 30 ML
     Route: 042
     Dates: start: 20210922, end: 20210922
  6. SOLIRIS [Suspect]
     Active Substance: ECULIZUMAB
     Dosage: 900 MG, QD (1 VIAL DE 30 ML)
     Route: 042
     Dates: start: 20210929, end: 20210929
  7. HEPARIN [Concomitant]
     Active Substance: HEPARIN SODIUM
     Indication: Product used for unknown indication
     Dosage: UNK
     Route: 065

REACTIONS (3)
  - Multiple organ dysfunction syndrome [Fatal]
  - Vascular device infection [Fatal]
  - Disseminated cryptococcosis [Fatal]

NARRATIVE: CASE EVENT DATE: 20210929
